FAERS Safety Report 6575534-4 (Version None)
Quarter: 2010Q1

REPORT INFORMATION
  Report Type: 
  Country: None (occurrence: None)
  Receive Date: 20100209
  Receipt Date: 20100125
  Transmission Date: 20100710
  Serious: Yes (Hospitalization)
  Sender: FDA-Public Use
  Company Number: IE-MEDIMMUNE-MEDI-0010446

PATIENT

DRUGS (2)
  1. SYNAGIS [Suspect]
     Route: 030
     Dates: start: 20091222, end: 20091222
  2. SYNAGIS [Suspect]
     Route: 030

REACTIONS (2)
  - BRONCHIOLITIS [None]
  - DYSPNOEA [None]
